FAERS Safety Report 15316499 (Version 1)
Quarter: 2018Q4

REPORT INFORMATION
  Report Type: Spontaneous
  Country: ES (occurrence: ES)
  Receive Date: 20180824
  Receipt Date: 20180824
  Transmission Date: 20190204
  Serious: Yes (Other)
  Sender: FDA-Public Use
  Company Number: ES-SA-2018SA229221

PATIENT
  Age: 73 Year
  Sex: Male

DRUGS (3)
  1. EMPAGLIFLOZIN;METFORMIN [Suspect]
     Active Substance: EMPAGLIFLOZIN\METFORMIN HYDROCHLORIDE
     Dates: start: 20180718
  2. ALIROCUMAB PREFILLED PEN [Suspect]
     Active Substance: ALIROCUMAB
     Route: 058
  3. ALIROCUMAB [Suspect]
     Active Substance: ALIROCUMAB
     Dosage: 150
     Route: 058
     Dates: start: 20180723

REACTIONS (2)
  - Pigmentation disorder [Recovered/Resolved]
  - Nail discolouration [Recovered/Resolved]

NARRATIVE: CASE EVENT DATE: 20180730
